FAERS Safety Report 12620045 (Version 2)
Quarter: 2016Q3

REPORT INFORMATION
  Report Type: Report from Study
  Country: GB (occurrence: GB)
  Receive Date: 20160803
  Receipt Date: 20160804
  Transmission Date: 20161109
  Serious: Yes (Hospitalization, Other)
  Sender: FDA-Public Use
  Company Number: ALCN2016GB005143

PATIENT
  Age: 65 Year
  Sex: Male

DRUGS (1)
  1. TRAVATAN [Suspect]
     Active Substance: TRAVOPROST
     Indication: OCULAR HYPERTENSION
     Dosage: 1 DF, QHS
     Route: 047

REACTIONS (11)
  - Iridocyclitis [Unknown]
  - Vitritis [Unknown]
  - Uveitis [Unknown]
  - Visual acuity reduced [Recovering/Resolving]
  - Retinal detachment [Unknown]
  - Eye disorder [Unknown]
  - Subretinal fluid [Recovered/Resolved]
  - Vogt-Koyanagi-Harada syndrome [Recovering/Resolving]
  - Choroidal detachment [Unknown]
  - Flat anterior chamber of eye [Unknown]
  - Vision blurred [Recovering/Resolving]
